FAERS Safety Report 20506697 (Version 1)
Quarter: 2022Q1

REPORT INFORMATION
  Report Type: Spontaneous
  Country: US (occurrence: None)
  Receive Date: 20220222
  Receipt Date: 20220222
  Transmission Date: 20220423
  Serious: Yes (Other)
  Sender: FDA-Public Use
  Company Number: None

PATIENT
  Age: 48 Year
  Sex: Male
  Weight: 68.9 kg

DRUGS (7)
  1. EMTRICITABINE [Suspect]
     Active Substance: EMTRICITABINE
     Indication: Prophylaxis
     Dosage: FREQUENCY : DAILY;?
     Route: 048
     Dates: start: 20160831
  2. ESCITALOPRAM [Concomitant]
     Active Substance: ESCITALOPRAM OXALATE
     Dates: start: 20120731
  3. OMEPRAZOLE [Concomitant]
     Active Substance: OMEPRAZOLE
     Dates: start: 20160126
  4. RANITIDINE 75 MG [Concomitant]
     Active Substance: RANITIDINE HYDROCHLORIDE
     Dates: start: 20160203
  5. VALACYCLOVIR [Concomitant]
     Active Substance: VALACYCLOVIR HYDROCHLORIDE
     Dates: start: 20110715
  6. Viagra 100 mg [Concomitant]
     Dates: start: 20170224
  7. ZOLPIDEM [Concomitant]
     Active Substance: ZOLPIDEM TARTRATE
     Dates: start: 20170224

REACTIONS (4)
  - Product substitution issue [None]
  - Diarrhoea [None]
  - Abdominal distension [None]
  - Condition aggravated [None]

NARRATIVE: CASE EVENT DATE: 20220112
